FAERS Safety Report 9693300 (Version 4)
Quarter: 2014Q1

REPORT INFORMATION
  Report Type: Report from Study
  Country: BR (occurrence: BR)
  Receive Date: 20131118
  Receipt Date: 20140319
  Transmission Date: 20141002
  Serious: Yes (Other)
  Sender: FDA-Public Use
  Company Number: BR-ROCHE-1304533

PATIENT
  Age: 74 Year
  Sex: Female
  Weight: 52 kg

DRUGS (7)
  1. ACTEMRA [Suspect]
     Indication: RHEUMATOID ARTHRITIS
     Route: 042
     Dates: start: 20130103
  2. ACTEMRA [Suspect]
     Dosage: THE LATEST DOSE OF ACTEMRA
     Route: 042
     Dates: start: 20140313
  3. ALENDRONATE [Concomitant]
  4. PREDNISONE [Concomitant]
  5. GABAPENTIN [Concomitant]
  6. IBUPROFEN [Concomitant]
  7. DICLOFENAC [Concomitant]

REACTIONS (1)
  - Upper limb fracture [Recovering/Resolving]
